FAERS Safety Report 6621130-X (Version None)
Quarter: 2010Q1

REPORT INFORMATION
  Report Type: 
  Country: None (occurrence: None)
  Receive Date: 20100309
  Receipt Date: 20100219
  Transmission Date: 20100710
  Serious: No
  Sender: FDA-Public Use
  Company Number: US-BIOGENIDEC-2010BI005576

PATIENT
  Sex: Male

DRUGS (2)
  1. AVONEX [Suspect]
     Indication: MULTIPLE SCLEROSIS
     Route: 030
     Dates: start: 20020101, end: 20030101
  2. AVONEX [Suspect]
     Route: 030
     Dates: start: 20030101

REACTIONS (10)
  - ASTHENIA [None]
  - CONTUSION [None]
  - FALL [None]
  - FATIGUE [None]
  - FOOT FRACTURE [None]
  - MYALGIA [None]
  - NAUSEA [None]
  - PAIN [None]
  - SPONDYLITIS [None]
  - WEIGHT DECREASED [None]
